FAERS Safety Report 19395443 (Version 2)
Quarter: 2021Q3

REPORT INFORMATION
  Report Type: Spontaneous
  Country: US (occurrence: US)
  Receive Date: 20210609
  Receipt Date: 20210922
  Transmission Date: 20211014
  Serious: Yes (Life-Threatening, Hospitalization, Disabling)
  Sender: FDA-Public Use
  Company Number: US-AMERICAN REGENT INC-2021001458

PATIENT
  Age: 37 Year
  Sex: Female
  Weight: 72.56 kg

DRUGS (5)
  1. LEVOTHYROXINE. [Concomitant]
     Active Substance: LEVOTHYROXINE
     Indication: HYPOTHYROIDISM
     Dosage: 150 MICROGRAM, QD
     Route: 048
     Dates: start: 20200331
  2. INJECTAFER [Suspect]
     Active Substance: FERRIC CARBOXYMALTOSE
     Indication: BLOOD IRON DECREASED
     Dosage: 750 MILLIGRAM, SINGLE, WEEKLY FOR TWO WEEKS
     Route: 042
     Dates: start: 20200403, end: 20200403
  3. INJECTAFER [Suspect]
     Active Substance: FERRIC CARBOXYMALTOSE
     Indication: IRON DEFICIENCY ANAEMIA
     Dosage: 750 MILLIGRAM, SINGLE, WEEKLY FOR TWO WEEKS
     Route: 042
     Dates: start: 20200409, end: 20200409
  4. VITAMIN D [ERGOCALCIFEROL] [Concomitant]
     Active Substance: ERGOCALCIFEROL
     Indication: VITAMIN D DEFICIENCY
     Dosage: 50000 INTERNATIONAL UNIT
     Route: 048
     Dates: start: 20200401, end: 20200622
  5. ZINC GLUCONATE [Concomitant]
     Active Substance: ZINC GLUCONATE
     Indication: ZINC DEFICIENCY
     Dosage: 50 MILLIGRAM, QD
     Route: 048
     Dates: start: 20200403, end: 20201202

REACTIONS (14)
  - Emotional distress [Not Recovered/Not Resolved]
  - Product quality issue [Unknown]
  - Pain [Not Recovered/Not Resolved]
  - Myalgia [Not Recovered/Not Resolved]
  - Hypophosphataemia [Not Recovered/Not Resolved]
  - Dyspnoea [Not Recovered/Not Resolved]
  - Headache [Not Recovered/Not Resolved]
  - Pain in extremity [Not Recovered/Not Resolved]
  - Palpitations [Not Recovered/Not Resolved]
  - Anhedonia [Not Recovered/Not Resolved]
  - Partner stress [Not Recovered/Not Resolved]
  - Inappropriate schedule of product administration [Not Recovered/Not Resolved]
  - Chest pain [Not Recovered/Not Resolved]
  - Chest discomfort [Recovering/Resolving]

NARRATIVE: CASE EVENT DATE: 202003
